FAERS Safety Report 25836969 (Version 1)
Quarter: 2025Q3

REPORT INFORMATION
  Report Type: Spontaneous
  Country: CN (occurrence: CN)
  Receive Date: 20250923
  Receipt Date: 20250923
  Transmission Date: 20251020
  Serious: Yes (Other)
  Sender: ORGANON
  Company Number: CN-ORGANON-O2509CHN001766

PATIENT
  Age: 83 Year
  Sex: Male

DRUGS (1)
  1. SINGULAIR [Suspect]
     Active Substance: MONTELUKAST SODIUM
     Indication: Cough
     Dosage: 10MG, QN, ORALLY||
     Route: 048
     Dates: start: 20250822, end: 20250912

REACTIONS (2)
  - Hepatic function abnormal [Recovering/Resolving]
  - Product use in unapproved indication [Unknown]

NARRATIVE: CASE EVENT DATE: 20250822
